FAERS Safety Report 9378495 (Version 2)
Quarter: 2013Q3

REPORT INFORMATION
  Report Type: Spontaneous
  Country: MX (occurrence: MX)
  Receive Date: 20130702
  Receipt Date: 20130712
  Transmission Date: 20140515
  Serious: Yes (Hospitalization, Other)
  Sender: FDA-Public Use
  Company Number: MX-ROCHE-1243635

PATIENT
  Sex: Male

DRUGS (2)
  1. MIRCERA [Suspect]
     Indication: PRODUCT USED FOR UNKNOWN INDICATION
     Route: 058
     Dates: start: 2011, end: 201306
  2. ARANESP [Concomitant]
     Route: 058

REACTIONS (1)
  - Anaemia [Recovered/Resolved]
